FAERS Safety Report 24814158 (Version 1)
Quarter: 2025Q1

REPORT INFORMATION
  Report Type: Spontaneous
  Country: CA (occurrence: CA)
  Receive Date: 20250107
  Receipt Date: 20250107
  Transmission Date: 20250408
  Serious: Yes (Hospitalization, Other)
  Sender: NOVARTIS
  Company Number: CA-SANDOZ-SDZ2025CA000232

PATIENT
  Age: 55 Year
  Sex: Female

DRUGS (13)
  1. CARBAMAZEPINE [Suspect]
     Active Substance: CARBAMAZEPINE
     Indication: Musculoskeletal pain
     Route: 065
  2. CARBAMAZEPINE [Suspect]
     Active Substance: CARBAMAZEPINE
     Indication: Analgesic therapy
  3. FENTANYL [Suspect]
     Active Substance: FENTANYL
     Indication: Musculoskeletal pain
     Route: 065
  4. FENTANYL [Suspect]
     Active Substance: FENTANYL
     Indication: Analgesic therapy
  5. BACLOFEN [Suspect]
     Active Substance: BACLOFEN
     Indication: Musculoskeletal pain
     Route: 065
  6. BACLOFEN [Suspect]
     Active Substance: BACLOFEN
     Indication: Analgesic therapy
  7. HYDROMORPHONE [Suspect]
     Active Substance: HYDROMORPHONE
     Indication: Musculoskeletal pain
     Route: 042
  8. HYDROMORPHONE [Suspect]
     Active Substance: HYDROMORPHONE
     Indication: Analgesic therapy
  9. KETAMINE HYDROCHLORIDE [Suspect]
     Active Substance: KETAMINE HYDROCHLORIDE
     Indication: Musculoskeletal pain
     Route: 065
  10. KETAMINE HYDROCHLORIDE [Suspect]
     Active Substance: KETAMINE HYDROCHLORIDE
     Indication: Analgesic therapy
  11. SUFENTANIL CITRATE [Suspect]
     Active Substance: SUFENTANIL CITRATE
     Indication: Musculoskeletal pain
     Route: 065
  12. SUFENTANIL CITRATE [Suspect]
     Active Substance: SUFENTANIL CITRATE
     Indication: Analgesic therapy
  13. METHADONE [Suspect]
     Active Substance: METHADONE HYDROCHLORIDE
     Indication: Analgesic therapy
     Route: 065

REACTIONS (3)
  - Pain [Recovered/Resolved]
  - Sedation [Recovered/Resolved]
  - Drug ineffective [Recovered/Resolved]
